FAERS Safety Report 10877590 (Version 2)
Quarter: 2020Q4

REPORT INFORMATION
  Report Type: Report from Study
  Country: US (occurrence: US)
  Receive Date: 20150302
  Receipt Date: 20201105
  Transmission Date: 20210113
  Serious: Yes (Death, Hospitalization, Other)
  Sender: FDA-Public Use
  Company Number: US-SA-2015SA024583

PATIENT
  Sex: Female

DRUGS (1)
  1. INSULIN GLARGINE [Suspect]
     Active Substance: INSULIN GLARGINE
     Indication: TYPE 2 DIABETES MELLITUS
     Dosage: 25 IU, QD (AT NIGHT)
     Route: 065
     Dates: start: 201409, end: 20201021

REACTIONS (3)
  - Pancreatitis [Fatal]
  - Diabetic complication [Fatal]
  - Hospitalisation [Unknown]
